FAERS Safety Report 6506653-6 (Version None)
Quarter: 2009Q4

REPORT INFORMATION
  Report Type: 
  Country: None (occurrence: None)
  Receive Date: 20091221
  Receipt Date: 20091210
  Transmission Date: 20100525
  Serious: Yes (Other)
  Sender: FDA-Public Use
  Company Number: US-JNJFOC-20091203465

PATIENT
  Sex: Female
  Weight: 86.18 kg

DRUGS (6)
  1. REMICADE [Suspect]
     Route: 042
  2. REMICADE [Suspect]
     Indication: CROHN'S DISEASE
     Route: 042
  3. XANAX [Concomitant]
  4. LASIX [Concomitant]
  5. PREDNISONE [Concomitant]
  6. ZOLOFT [Concomitant]

REACTIONS (3)
  - CROHN'S DISEASE [None]
  - HYPERSENSITIVITY [None]
  - VAGINAL FISTULA [None]
